FAERS Safety Report 6716491-7 (Version None)
Quarter: 2010Q2

REPORT INFORMATION
  Report Type: 
  Country: None (occurrence: None)
  Receive Date: 20100507
  Receipt Date: 20100426
  Transmission Date: 20101027
  Serious: Yes (Hospitalization)
  Sender: FDA-Public Use
  Company Number: US-ELI_LILLY_AND_COMPANY-US201003000675

PATIENT
  Sex: Female

DRUGS (11)
  1. FORTEO [Suspect]
     Indication: DRUG USE FOR UNKNOWN INDICATION
  2. CYMBALTA [Suspect]
     Indication: DRUG USE FOR UNKNOWN INDICATION
     Dosage: 30 MG, DAILY (1/D)
  3. MAALOX [Concomitant]
     Dosage: 30 ML, AS NEEDED
  4. MILK OF MAGNESIA TAB [Concomitant]
     Dosage: 30 ML, AS NEEDED
  5. AMBIEN [Concomitant]
     Dosage: 5 MG, AS NEEDED
  6. KLONOPIN [Concomitant]
     Dosage: 1 MG, EACH EVENING
  7. FLEXERIL [Concomitant]
     Dosage: 10 MG, AS NEEDED
  8. SEROQUEL [Concomitant]
     Dosage: 12.5 MG, AS NEEDED
  9. SEROQUEL [Concomitant]
     Dosage: 25 MG, EACH EVENING
  10. OXYCODONE HCL [Concomitant]
     Dosage: 5 MG, AS NEEDED
  11. LISINOPRIL [Concomitant]
     Indication: HYPERTENSION
     Dosage: 5 MG, AS NEEDED

REACTIONS (1)
  - PSYCHOTIC DISORDER [None]
